FAERS Safety Report 17527561 (Version 1)
Quarter: 2020Q1

REPORT INFORMATION
  Report Type: Spontaneous
  Country: ES (occurrence: ES)
  Receive Date: 20200311
  Receipt Date: 20200311
  Transmission Date: 20200409
  Serious: Yes (Hospitalization)
  Sender: FDA-Public Use
  Company Number: ES-B.I. PHARMACEUTICALS,INC./RIDGEFIELD-2020-12-013570

PATIENT
  Age: 62 Year
  Sex: Male

DRUGS (1)
  1. JARDIANCE [Suspect]
     Active Substance: EMPAGLIFLOZIN
     Indication: DIABETIC VASCULAR DISORDER
     Route: 048
     Dates: start: 20190613, end: 20200219

REACTIONS (1)
  - Toe amputation [Recovering/Resolving]

NARRATIVE: CASE EVENT DATE: 20200218
